FAERS Safety Report 8139162-1 (Version None)
Quarter: 2012Q1

REPORT INFORMATION
  Report Type: 
  Country: None (occurrence: None)
  Receive Date: 20120215
  Receipt Date: 20120208
  Transmission Date: 20120608
  Serious: Yes (Hospitalization)
  Sender: FDA-Public Use
  Company Number: US-BAYER-2011-075702

PATIENT
  Age: 16 Year
  Sex: Female
  Weight: 48.526 kg

DRUGS (15)
  1. ALBUTEROL [Concomitant]
     Indication: ASTHMA
     Dosage: 90 UNK, UNK
     Dates: start: 20050330, end: 20060519
  2. YASMIN [Suspect]
     Indication: CONTRACEPTION
     Dosage: UNK
     Route: 048
     Dates: start: 20050101, end: 20050401
  3. BENZONATATE [Concomitant]
     Dosage: 100 MG, UNK
     Dates: start: 20040427, end: 20050408
  4. PITOCIN [Concomitant]
     Dosage: UNK
     Route: 030
     Dates: start: 20050125
  5. LIDOCAINE [Concomitant]
     Indication: LOCAL ANAESTHESIA
     Dosage: UNK
     Dates: start: 20050125
  6. FLOVENT [Concomitant]
     Indication: ASTHMA
     Dosage: UNK
     Dates: start: 20050330, end: 20060519
  7. NAPROXEN (ALEVE) [Concomitant]
     Dosage: UNK
     Dates: start: 20041103, end: 20050119
  8. ERGONOVINE MALEATE [Concomitant]
     Dosage: 0.2 MG, UNK
     Route: 048
     Dates: start: 20050125
  9. DOXYCYCLINE [Concomitant]
     Dosage: 100 MG, UNK
     Route: 048
     Dates: start: 20050125
  10. RHOGAM [Concomitant]
     Dosage: UNK
     Route: 030
     Dates: start: 20050125
  11. MAXALT [Concomitant]
     Indication: HEADACHE
     Dosage: UNK
     Dates: start: 20041103, end: 20061019
  12. MIDRIN [Concomitant]
     Dosage: UNK
     Dates: start: 20040518, end: 20050119
  13. ACETAMINOPHEN [Concomitant]
     Indication: PYREXIA
     Dosage: UNK
     Dates: start: 20041103, end: 20050125
  14. IBUPROFEN [Concomitant]
     Dosage: 400 MG, UNK
     Route: 048
     Dates: start: 20050125
  15. INDERAL [Concomitant]
     Indication: MIGRAINE
     Dosage: 60 MG, UNK
     Dates: start: 20050312, end: 20050330

REACTIONS (4)
  - PAIN [None]
  - INJURY [None]
  - CHOLECYSTITIS CHRONIC [None]
  - CHOLECYSTECTOMY [None]
